FAERS Safety Report 9867081 (Version 1)
Quarter: 2014Q1

REPORT INFORMATION
  Report Type: Spontaneous
  Country: US (occurrence: US)
  Receive Date: 20140204
  Receipt Date: 20140204
  Transmission Date: 20141002
  Serious: No
  Sender: FDA-Public Use
  Company Number: US-009507513-1401USA013300

PATIENT
  Sex: Male

DRUGS (1)
  1. PEGINTRON [Suspect]
     Indication: HEPATITIS C
     Dosage: UNK
     Dates: start: 19990127, end: 20080127

REACTIONS (5)
  - Spinal fracture [Unknown]
  - Treatment failure [Unknown]
  - Fall [Unknown]
  - Intervertebral disc protrusion [Unknown]
  - Hepatic cirrhosis [Unknown]
